FAERS Safety Report 20533883 (Version 2)
Quarter: 2022Q1

REPORT INFORMATION
  Report Type: Spontaneous
  Country: US (occurrence: US)
  Receive Date: 20220301
  Receipt Date: 20220304
  Transmission Date: 20220423
  Serious: Yes (Death, Other)
  Sender: FDA-Public Use
  Company Number: US-SEATTLE GENETICS-2022SGN01994

PATIENT
  Age: 18 Year
  Sex: Female

DRUGS (4)
  1. ADCETRIS [Suspect]
     Active Substance: BRENTUXIMAB VEDOTIN
     Indication: Epithelioid sarcoma
     Dosage: 1.8 MG/KG ON D1
     Route: 065
  2. DOXORUBICIN [Suspect]
     Active Substance: DOXORUBICIN
     Indication: Epithelioid sarcoma
     Dosage: 37.5 MG/M2 ON D1 D2
     Route: 065
  3. VINBLASTINE [Suspect]
     Active Substance: VINBLASTINE
     Indication: Epithelioid sarcoma
     Route: 065
  4. ALECTINIB [Suspect]
     Active Substance: ALECTINIB
     Indication: Epithelioid sarcoma
     Dosage: UNK, BID
     Route: 065

REACTIONS (7)
  - Multiple organ dysfunction syndrome [Fatal]
  - Candida infection [Fatal]
  - Pancytopenia [Unknown]
  - Pulmonary haemorrhage [Unknown]
  - Cytomegalovirus viraemia [Unknown]
  - Acute respiratory distress syndrome [Unknown]
  - Off label use [Unknown]
